FAERS Safety Report 25405692 (Version 1)
Quarter: 2025Q2

REPORT INFORMATION
  Report Type: Spontaneous
  Country: US (occurrence: US)
  Receive Date: 20250606
  Receipt Date: 20250606
  Transmission Date: 20250717
  Serious: Yes (Hospitalization, Other)
  Sender: AUROBINDO
  Company Number: US-MLMSERVICE-20250516-PI510040-00271-1

PATIENT
  Age: 58 Year
  Sex: Male

DRUGS (2)
  1. PREDNISONE [Suspect]
     Active Substance: PREDNISONE
     Indication: Immunosuppressant drug therapy
     Route: 065
  2. SIROLIMUS [Suspect]
     Active Substance: SIROLIMUS
     Indication: Immunosuppressant drug therapy
     Route: 065

REACTIONS (6)
  - Streptococcal bacteraemia [Recovering/Resolving]
  - Sepsis [Recovering/Resolving]
  - Lactic acidosis [Recovering/Resolving]
  - Pyelonephritis [Recovering/Resolving]
  - Atrial tachycardia [Recovering/Resolving]
  - Bundle branch block right [Recovering/Resolving]
